FAERS Safety Report 6906242-5 (Version None)
Quarter: 2010Q3

REPORT INFORMATION
  Report Type: 
  Country: None (occurrence: None)
  Receive Date: 20100802
  Receipt Date: 20100702
  Transmission Date: 20110219
  Serious: Yes (Death)
  Sender: FDA-Public Use
  Company Number: 009945

PATIENT
  Sex: Male

DRUGS (1)
  1. SAMSCA [Suspect]
     Indication: INAPPROPRIATE ANTIDIURETIC HORMONE SECRETION
     Dosage: 30 MG, ORAL
     Route: 048

REACTIONS (4)
  - MALIGNANT NEOPLASM PROGRESSION [None]
  - OROPHARYNGEAL CANCER STAGE UNSPECIFIED [None]
  - POLLAKIURIA [None]
  - THIRST [None]
